FAERS Safety Report 5975559-3 (Version None)
Quarter: 2008Q4

REPORT INFORMATION
  Report Type: 
  Country: None (occurrence: None)
  Receive Date: 20081202
  Receipt Date: 20081003
  Transmission Date: 20090506
  Serious: No
  Sender: FDA-Public Use
  Company Number: A0750471A

PATIENT
  Age: 15 Year
  Sex: Male

DRUGS (2)
  1. AUGMENTIN '125' [Suspect]
     Indication: ACUTE SINUSITIS
     Route: 048
     Dates: start: 20080901
  2. INHALER [Concomitant]

REACTIONS (4)
  - ABDOMINAL PAIN UPPER [None]
  - ABNORMAL FAECES [None]
  - ILL-DEFINED DISORDER [None]
  - LACTOSE INTOLERANCE [None]
